FAERS Safety Report 8581754-X (Version None)
Quarter: 2012Q3

REPORT INFORMATION
  Report Type: 
  Country: None (occurrence: None)
  Receive Date: 20120801
  Receipt Date: 20120801
  Transmission Date: 20120928
  Serious: Yes (Other)
  Sender: FDA-Public Use
  Company Number: None

PATIENT
  Age: 31 Year
  Sex: Female
  Weight: 70.3075 kg

DRUGS (1)
  1. MONISTAT [Suspect]

REACTIONS (6)
  - MATERNAL EXPOSURE DURING PREGNANCY [None]
  - APPLICATION SITE SWELLING [None]
  - APPLICATION SITE INFLAMMATION [None]
  - ABASIA [None]
  - APPLICATION SITE PAIN [None]
  - VAGINAL DISORDER [None]
